FAERS Safety Report 10068691 (Version 2)
Quarter: 2014Q2

REPORT INFORMATION
  Report Type: Spontaneous
  Country: US (occurrence: US)
  Receive Date: 20140409
  Receipt Date: 20140409
  Transmission Date: 20141212
  Serious: No
  Sender: FDA-Public Use
  Company Number: US-MYLANLABS-2013S1029160

PATIENT
  Age: 56 Year
  Sex: Female
  Weight: 62.14 kg

DRUGS (7)
  1. METOPROLOL SUCCINATE EXTENDED-RELEASE TABLETS USP [Suspect]
     Indication: BLOOD PRESSURE
     Route: 048
     Dates: start: 201311
  2. METOPROLOL SUCCINATE EXTENDED-RELEASE TABLETS USP [Suspect]
     Indication: HYPERTENSION
     Route: 048
     Dates: start: 201311
  3. ANASTROZOLE [Concomitant]
  4. ATORVASTATIN [Concomitant]
  5. VITAMIN E [Concomitant]
  6. LYSINE [Concomitant]
  7. GLUCOSAMINE [Concomitant]

REACTIONS (2)
  - Drug ineffective [Recovered/Resolved]
  - Blood pressure increased [Recovered/Resolved]
